FAERS Safety Report 7773708-8 (Version None)
Quarter: 2011Q3

REPORT INFORMATION
  Report Type: 
  Country: None (occurrence: None)
  Receive Date: 20110920
  Receipt Date: 20110906
  Transmission Date: 20111222
  Serious: Yes (Hospitalization)
  Sender: FDA-Public Use
  Company Number: 2011-2903

PATIENT
  Age: 79 Year
  Sex: Female
  Weight: 63 kg

DRUGS (13)
  1. VITAMIN B12 [Concomitant]
  2. ZOLOFT [Concomitant]
  3. ASPIRIN [Concomitant]
  4. DILTIAZEM HCL [Concomitant]
  5. UNSPECIFIED HERBAL DRUGS (HERBAL PREPARATION) [Concomitant]
  6. DYSPORT [Suspect]
     Indication: MUSCLE SPASTICITY
     Dosage: 2000 UNITS (2000 UNITS, SINGLE CYCLE)
     Dates: start: 20110616, end: 20110616
  7. SYSTANE (TETRYZOLINE HYDROCHLORIDE) [Concomitant]
  8. LIDODERM [Concomitant]
  9. AVAPRO [Concomitant]
  10. COLACE (DOCUSATE SODIUM) [Concomitant]
  11. BACLOFEN [Concomitant]
  12. PLAVIX [Concomitant]
  13. ZANAFLEX [Concomitant]

REACTIONS (18)
  - DYSPHAGIA [None]
  - ATELECTASIS [None]
  - TOXICITY TO VARIOUS AGENTS [None]
  - ASTHENIA [None]
  - MUSCULAR WEAKNESS [None]
  - VISION BLURRED [None]
  - ASPIRATION [None]
  - GRANULOMA [None]
  - BLOOD PRESSURE SYSTOLIC INCREASED [None]
  - OVERDOSE [None]
  - HYPOKINESIA [None]
  - EYELID DISORDER [None]
  - HYPERREFLEXIA [None]
  - PRODUCT QUALITY ISSUE [None]
  - FATIGUE [None]
  - DYSPNOEA [None]
  - IMPAIRED SELF-CARE [None]
  - BRONCHITIS [None]
